FAERS Safety Report 17685851 (Version 1)
Quarter: 2020Q2

REPORT INFORMATION
  Report Type: Spontaneous
  Country: US (occurrence: US)
  Receive Date: 20200420
  Receipt Date: 20200420
  Transmission Date: 20200714
  Serious: No
  Sender: FDA-Public Use
  Company Number: US-009507513-2004USA005534

PATIENT
  Sex: Female

DRUGS (1)
  1. NEXPLANON [Suspect]
     Active Substance: ETONOGESTREL
     Indication: CONTRACEPTION
     Dosage: ONE ROD FOR ABOUT 3 YEARS 2 MONTHS
     Route: 059
     Dates: start: 201702, end: 20200410

REACTIONS (2)
  - Incorrect product administration duration [Unknown]
  - Breast pain [Unknown]

NARRATIVE: CASE EVENT DATE: 202002
